FAERS Safety Report 19177404 (Version 1)
Quarter: 2021Q2

REPORT INFORMATION
  Report Type: Report from Study
  Country: DE (occurrence: DE)
  Receive Date: 20210425
  Receipt Date: 20210425
  Transmission Date: 20210717
  Serious: Yes (Death, Hospitalization, Other)
  Sender: FDA-Public Use
  Company Number: DE-JNJFOC-A-CH2019-193906

PATIENT
  Age: 79 Year
  Sex: Male
  Weight: 85 kg

DRUGS (11)
  1. REVATIO [Concomitant]
     Active Substance: SILDENAFIL CITRATE
     Dosage: 60 MG, QD
     Route: 048
     Dates: start: 20171213, end: 202003
  2. ASPIRIN. [Concomitant]
     Active Substance: ASPIRIN
     Indication: CORONARY ARTERY DISEASE
     Dosage: UNK
     Route: 048
  3. HCT [Concomitant]
     Active Substance: HYDROCHLOROTHIAZIDE
     Dosage: UNK
     Route: 048
     Dates: start: 20200301
  4. ATORVASTATIN [Concomitant]
     Active Substance: ATORVASTATIN
     Indication: HYPERLIPIDAEMIA
     Dosage: UNK
     Route: 048
  5. NOVALGIN [Concomitant]
     Indication: PAIN
     Dosage: UNK
     Route: 048
     Dates: start: 201712
  6. OMEPRAZOL [Concomitant]
     Active Substance: OMEPRAZOLE
     Indication: PROPHYLAXIS
     Dosage: UNK
     Route: 048
  7. RAMIPRIL. [Concomitant]
     Active Substance: RAMIPRIL
     Indication: HYPERTENSION
     Dosage: UNK
     Route: 048
     Dates: end: 20200304
  8. TORASEMID [Concomitant]
     Active Substance: TORSEMIDE
     Indication: DIURETIC THERAPY
     Dosage: UNK
     Route: 048
     Dates: start: 20171214, end: 20200226
  9. POTASSIUM [Concomitant]
     Active Substance: POTASSIUM
     Dosage: UNK
     Route: 048
     Dates: start: 20200206, end: 20200307
  10. TOREM [Concomitant]
     Active Substance: TORSEMIDE
     Dosage: UNK
     Route: 048
     Dates: start: 20200307
  11. MACITENTAN [Suspect]
     Active Substance: MACITENTAN
     Indication: PULMONARY ARTERIAL HYPERTENSION
     Dosage: 10 MG, QD
     Route: 048
     Dates: start: 20180919, end: 202003

REACTIONS (20)
  - Sleep disorder [Unknown]
  - Atrial fibrillation [Recovered/Resolved]
  - Dyspnoea [Recovered/Resolved]
  - Fibrin D dimer increased [Unknown]
  - Angina unstable [Recovered/Resolved]
  - Concomitant disease aggravated [Unknown]
  - Brain natriuretic peptide increased [Unknown]
  - Respiratory failure [Fatal]
  - Cardiac failure [Fatal]
  - Respiratory tract infection [Unknown]
  - Blood creatinine increased [Unknown]
  - C-reactive protein increased [Unknown]
  - Emphysema [Unknown]
  - Depressed mood [Not Recovered/Not Resolved]
  - Pulmonary arterial hypertension [Unknown]
  - Right ventricular failure [Recovered/Resolved]
  - Dyspnoea paroxysmal nocturnal [Not Recovered/Not Resolved]
  - Disease progression [Unknown]
  - Pneumonia [Fatal]
  - Anxiety [Not Recovered/Not Resolved]

NARRATIVE: CASE EVENT DATE: 201905
